FAERS Safety Report 23336255 (Version 1)
Quarter: 2023Q4

REPORT INFORMATION
  Report Type: Spontaneous
  Country: US (occurrence: US)
  Receive Date: 20231225
  Receipt Date: 20231225
  Transmission Date: 20240109
  Serious: No
  Sender: FDA-Public Use
  Company Number: US-JNJFOC-20231246115

PATIENT

DRUGS (3)
  1. SPRAVATO [Suspect]
     Active Substance: ESKETAMINE
     Indication: Product used for unknown indication
     Route: 045
  2. SPRAVATO [Suspect]
     Active Substance: ESKETAMINE
     Route: 045
  3. ATIVAN [Concomitant]
     Active Substance: LORAZEPAM
     Dosage: HALF OF AN ATIVAN
     Route: 065

REACTIONS (2)
  - Feeling abnormal [Unknown]
  - Chest discomfort [Unknown]
